FAERS Safety Report 12774972 (Version 1)
Quarter: 2016Q3

REPORT INFORMATION
  Report Type: Spontaneous
  Country: JP (occurrence: JP)
  Receive Date: 20160923
  Receipt Date: 20160923
  Transmission Date: 20161109
  Serious: Yes (Hospitalization)
  Sender: FDA-Public Use
  Company Number: ALCN2011JP001516

PATIENT
  Age: 42 Year
  Sex: Female

DRUGS (4)
  1. VEGAMOX [Suspect]
     Active Substance: MOXIFLOXACIN HYDROCHLORIDE
     Indication: KERATITIS
     Route: 047
     Dates: start: 20101227, end: 20110113
  2. DIQUAS [Concomitant]
     Active Substance: DIQUAFOSOL TETRASODIUM
     Indication: KERATITIS
     Route: 047
     Dates: start: 20101227, end: 20110113
  3. HYALEIN [Concomitant]
     Active Substance: HYALURONATE SODIUM
     Indication: KERATITIS
     Route: 047
     Dates: start: 20101227, end: 20110113
  4. VEGAMOX [Suspect]
     Active Substance: MOXIFLOXACIN HYDROCHLORIDE
     Route: 047
     Dates: start: 20101227

REACTIONS (1)
  - Corneal perforation [Not Recovered/Not Resolved]

NARRATIVE: CASE EVENT DATE: 20110113
